FAERS Safety Report 7389008-4 (Version None)
Quarter: 2011Q2

REPORT INFORMATION
  Report Type: 
  Country: None (occurrence: None)
  Receive Date: 20110401
  Receipt Date: 20110329
  Transmission Date: 20111010
  Serious: Yes (Other)
  Sender: FDA-Public Use
  Company Number: US-PFIZER INC-2011019667

PATIENT
  Sex: Female
  Weight: 54.422 kg

DRUGS (5)
  1. LYRICA [Concomitant]
     Indication: FIBROMYALGIA
     Dosage: 50 MG, EVERY 4 HRS
     Route: 048
  2. TRAMADOL [Concomitant]
     Indication: BACK PAIN
     Dosage: 100 MG, EVERY 4 HRS
     Route: 048
  3. GEODON [Suspect]
     Indication: SCHIZOPHRENIA
     Dosage: 100 MG, 2X/DAY
     Dates: start: 20100101, end: 20110125
  4. LAMICTAL [Suspect]
     Indication: BIPOLAR DISORDER
     Dosage: 100 MG, 1X/DAY
     Route: 048
     Dates: start: 20100901
  5. ZOLOFT [Concomitant]
     Indication: BIPOLAR DISORDER
     Dosage: 100 MG, 2X/DAY
     Route: 048

REACTIONS (5)
  - MYDRIASIS [None]
  - HALLUCINATION [None]
  - TREMOR [None]
  - PSYCHOTIC DISORDER [None]
  - GAIT DISTURBANCE [None]
